FAERS Safety Report 25490640 (Version 1)
Quarter: 2025Q2

REPORT INFORMATION
  Report Type: Spontaneous
  Country: US (occurrence: US)
  Receive Date: 20250628
  Receipt Date: 20250628
  Transmission Date: 20250716
  Serious: Yes (Other)
  Sender: AMGEN
  Company Number: US-AMGEN-USASP2025123982

PATIENT

DRUGS (2)
  1. PREDNISONE [Suspect]
     Active Substance: PREDNISONE
     Indication: Immunosuppression
     Route: 065
  2. BASILIXIMAB [Concomitant]
     Active Substance: BASILIXIMAB

REACTIONS (2)
  - Transplant rejection [Unknown]
  - Infection [Unknown]
